FAERS Safety Report 24893199 (Version 2)
Quarter: 2025Q1

REPORT INFORMATION
  Report Type: Report from Study
  Country: NO (occurrence: None)
  Receive Date: 20250128
  Receipt Date: 20250128
  Transmission Date: 20250409
  Serious: Yes (Death, Hospitalization, Other)
  Sender: UNICHEM
  Company Number: NO-Unichem Pharmaceuticals (USA) Inc-UCM202501-000105

PATIENT
  Age: 20 Year
  Sex: Female

DRUGS (3)
  1. QUETIAPINE [Suspect]
     Active Substance: QUETIAPINE
     Indication: Depression
  2. SERTRALINE [Suspect]
     Active Substance: SERTRALINE HYDROCHLORIDE
     Indication: Product used for unknown indication
  3. HYDROXYZINE HYDROCHLORIDE [Suspect]
     Active Substance: HYDROXYZINE HYDROCHLORIDE
     Indication: Product used for unknown indication

REACTIONS (14)
  - Electrocardiogram QRS complex prolonged [Unknown]
  - Pulmonary haemorrhage [Unknown]
  - Metabolic acidosis [Unknown]
  - Respiratory acidosis [Unknown]
  - Cyanosis [Unknown]
  - Haemorrhage [Unknown]
  - Bundle branch block [Unknown]
  - Oedema [Unknown]
  - Small intestinal haemorrhage [Unknown]
  - Condition aggravated [Unknown]
  - Coma [Unknown]
  - Hypotension [Unknown]
  - Toxicity to various agents [Fatal]
  - Intentional overdose [Fatal]
